FAERS Safety Report 17186044 (Version 5)
Quarter: 2024Q1

REPORT INFORMATION
  Report Type: Report from Study
  Country: JP (occurrence: JP)
  Receive Date: 20191220
  Receipt Date: 20240207
  Transmission Date: 20240410
  Serious: Yes (Death, Disabling)
  Sender: FDA-Public Use
  Company Number: JP-BIOGEN-2019BI00818401

PATIENT
  Age: 44 Year
  Sex: Female
  Weight: 58 kg

DRUGS (3)
  1. TYSABRI [Suspect]
     Active Substance: NATALIZUMAB
     Indication: Relapsing-remitting multiple sclerosis
     Route: 050
     Dates: start: 20181228, end: 20190701
  2. KEYTRUDA [Concomitant]
     Active Substance: PEMBROLIZUMAB
     Indication: Bladder cancer
     Route: 050
     Dates: start: 20190109, end: 20190514
  3. PREDONINE [Concomitant]
     Active Substance: PREDNISOLONE
     Indication: Relapsing-remitting multiple sclerosis
     Route: 050
     Dates: end: 20190618

REACTIONS (3)
  - Bladder cancer [Fatal]
  - Cerebral infarction [Unknown]
  - Prescribed underdose [Unknown]

NARRATIVE: CASE EVENT DATE: 20190731
